FAERS Safety Report 9575191 (Version 1)
Quarter: 2013Q4

REPORT INFORMATION
  Report Type: Spontaneous
  Country: US (occurrence: US)
  Receive Date: 20131001
  Receipt Date: 20131001
  Transmission Date: 20140711
  Serious: No
  Sender: FDA-Public Use
  Company Number: US-BAXTER-2012BAX025248

PATIENT
  Age: 59 Year
  Sex: Female

DRUGS (10)
  1. DIANEAL PD2 [Suspect]
     Indication: PERITONEAL DIALYSIS
     Route: 033
     Dates: start: 20121101
  2. CLONOPIN [Concomitant]
     Indication: ANXIETY
     Route: 065
  3. CRESTOR [Concomitant]
     Indication: PRODUCT USED FOR UNKNOWN INDICATION
     Route: 065
  4. ATIVAN [Concomitant]
     Indication: PANIC ATTACK
     Route: 065
  5. PROCARDIA [Concomitant]
     Indication: PRODUCT USED FOR UNKNOWN INDICATION
     Route: 048
  6. SODIUM BICARBONATE [Concomitant]
     Indication: PRODUCT USED FOR UNKNOWN INDICATION
     Route: 065
  7. SYNTHROID [Concomitant]
     Indication: THYROID DISORDER
     Route: 065
  8. LASIX [Concomitant]
     Indication: PRODUCT USED FOR UNKNOWN INDICATION
     Route: 065
  9. WELLBUTRIN [Concomitant]
     Indication: DEPRESSION
     Route: 065
  10. STOOL SOFTENER [Concomitant]
     Indication: CONSTIPATION PROPHYLAXIS

REACTIONS (3)
  - Dyspnoea [Recovered/Resolved]
  - Abdominal distension [Recovered/Resolved]
  - Abdominal pain [Recovered/Resolved]
